FAERS Safety Report 7380547-9 (Version None)
Quarter: 2011Q1

REPORT INFORMATION
  Report Type: 
  Country: None (occurrence: None)
  Receive Date: 20110321
  Receipt Date: 20110308
  Transmission Date: 20110831
  Serious: Yes (Hospitalization, Disabling)
  Sender: FDA-Public Use
  Company Number: 2011P1003851

PATIENT
  Age: 69 Year
  Sex: Female
  Weight: 66.6788 kg

DRUGS (22)
  1. CRESTOR [Concomitant]
  2. FISH OIL [Concomitant]
  3. VOLTAREN [Concomitant]
  4. LAMOTRIGINE [Suspect]
     Indication: BIPOLAR II DISORDER
     Dosage: 1 TABLET; PO, 2 TABLET, 1 TABLET
     Route: 048
     Dates: start: 20101212, end: 20101212
  5. LAMOTRIGINE [Suspect]
     Indication: BIPOLAR II DISORDER
     Dosage: 1 TABLET; PO, 2 TABLET, 1 TABLET
     Route: 048
     Dates: start: 20101211, end: 20101211
  6. LAMOTRIGINE [Suspect]
     Indication: BIPOLAR II DISORDER
     Dosage: 1 TABLET; PO, 2 TABLET, 1 TABLET
     Route: 048
     Dates: start: 20101213, end: 20101215
  7. NEXIUM [Concomitant]
  8. DIPHENHYDRAMINE HCL [Concomitant]
  9. GABAPENTIN [Concomitant]
  10. SAVELLA [Concomitant]
  11. GLYBURIDE [Concomitant]
  12. LUBIPROSTONE [Concomitant]
  13. WOMAN'S ONE A DAY MULTIVITAMINS [Concomitant]
  14. DIVIGEL [Concomitant]
  15. MICARDIS HCT [Concomitant]
  16. ASPIRIN [Concomitant]
  17. GARKIC SUPPLEMENT [Concomitant]
  18. HYDROCODONE [Concomitant]
  19. MAGNESIUM [Concomitant]
  20. GELNIQUE [Concomitant]
  21. VITAMIN B-12 [Concomitant]
  22. POTASSIUM GLUCONATE TAB [Concomitant]

REACTIONS (35)
  - GAIT DISTURBANCE [None]
  - DIPLOPIA [None]
  - REFUSAL OF TREATMENT BY PATIENT [None]
  - NIGHT SWEATS [None]
  - MYALGIA [None]
  - CEREBRAL ATROPHY [None]
  - CEREBRAL ISCHAEMIA [None]
  - TREATMENT NONCOMPLIANCE [None]
  - UNEVALUABLE EVENT [None]
  - FALL [None]
  - PAIN [None]
  - BLOOD PRESSURE INCREASED [None]
  - SCREAMING [None]
  - MUSCULAR WEAKNESS [None]
  - DIZZINESS [None]
  - DISCOMFORT [None]
  - ELECTROCARDIOGRAM ST-T SEGMENT ABNORMAL [None]
  - PRESYNCOPE [None]
  - MEMORY IMPAIRMENT [None]
  - FATIGUE [None]
  - BALANCE DISORDER [None]
  - AGITATION [None]
  - MENTAL DISORDER [None]
  - HYPOAESTHESIA [None]
  - RESTLESS LEGS SYNDROME [None]
  - ATAXIA [None]
  - INAPPROPRIATE SCHEDULE OF DRUG ADMINISTRATION [None]
  - DYSKINESIA [None]
  - CEREBROVASCULAR ACCIDENT [None]
  - ASTHENIA [None]
  - ABASIA [None]
  - OROPHARYNGEAL PAIN [None]
  - TREMOR [None]
  - DYSURIA [None]
  - SPEECH DISORDER [None]
